FAERS Safety Report 17455269 (Version 1)
Quarter: 2020Q1

REPORT INFORMATION
  Report Type: Spontaneous
  Country: US (occurrence: US)
  Receive Date: 20200212
  Receipt Date: 20200212
  Transmission Date: 20200409
  Serious: Yes (Other)
  Sender: FDA-Public Use
  Company Number: None

PATIENT
  Age: 11 Year
  Sex: Male
  Weight: 69.22 kg

DRUGS (2)
  1. CLONIDINE ER 0.1MG [Suspect]
     Active Substance: CLONIDINE HYDROCHLORIDE
     Indication: ATTENTION DEFICIT/HYPERACTIVITY DISORDER
     Dosage: 0.1MG AM/0.2MG PM PO
     Route: 048
     Dates: start: 20200128, end: 20200212
  2. CLONIDINE ER 0.1MG [Suspect]
     Active Substance: CLONIDINE HYDROCHLORIDE
     Indication: ATTENTION DEFICIT/HYPERACTIVITY DISORDER
     Dosage: 0.1MG AM/0.2MG PM PO
     Route: 048
     Dates: start: 20191220, end: 20200110

REACTIONS (4)
  - Agitation [None]
  - Memory impairment [None]
  - Product substitution issue [None]
  - Irritability [None]

NARRATIVE: CASE EVENT DATE: 20200107
